FAERS Safety Report 15877048 (Version 2)
Quarter: 2019Q1

REPORT INFORMATION
  Report Type: Report from Study
  Country: US (occurrence: US)
  Receive Date: 20190128
  Receipt Date: 20190226
  Transmission Date: 20190417
  Serious: Yes (Other)
  Sender: FDA-Public Use
  Company Number: US-SA-2019SA020555

PATIENT
  Age: 48 Year
  Sex: Female

DRUGS (2)
  1. INSULIN GLARGINE [Suspect]
     Active Substance: INSULIN GLARGINE
     Indication: TYPE 2 DIABETES MELLITUS
     Dosage: 30 U, QD
  2. HUMALOG [Concomitant]
     Active Substance: INSULIN LISPRO

REACTIONS (6)
  - Blood glucose increased [Unknown]
  - Vision blurred [Not Recovered/Not Resolved]
  - Osteomyelitis [Unknown]
  - Toe amputation [Unknown]
  - Flatulence [Unknown]
  - Product dose omission [Unknown]

NARRATIVE: CASE EVENT DATE: 20190114
